FAERS Safety Report 10215211 (Version 8)
Quarter: 2014Q4

REPORT INFORMATION
  Report Type: Report from Study
  Country: DE (occurrence: DE)
  Receive Date: 20140603
  Receipt Date: 20141204
  Transmission Date: 20150528
  Serious: Yes (Hospitalization, Other)
  Sender: FDA-Public Use
  Company Number: PHHY2014DE067021

PATIENT
  Sex: Female
  Weight: 52 kg

DRUGS (2)
  1. EXEMESTAN ? 1 A PHARMA [Suspect]
     Active Substance: EXEMESTANE
     Indication: BREAST CANCER METASTATIC
     Dosage: 25 MG, QD
     Route: 048
     Dates: start: 20140423, end: 20141006
  2. AFINITOR [Suspect]
     Active Substance: EVEROLIMUS
     Indication: BREAST CANCER METASTATIC
     Dosage: 10 MG, QD
     Route: 048
     Dates: start: 20140423, end: 20141006

REACTIONS (13)
  - General physical health deterioration [Recovered/Resolved]
  - Confusional state [Recovered/Resolved]
  - Lobar pneumonia [Recovered/Resolved]
  - Pyrexia [Recovered/Resolved]
  - Rales [Unknown]
  - Hypertension [Recovered/Resolved]
  - Sleep disorder [Not Recovered/Not Resolved]
  - Dry skin [Recovered/Resolved]
  - Febrile infection [Unknown]
  - Cough [Unknown]
  - Dyspnoea exertional [Unknown]
  - Pallor [Recovered/Resolved]
  - Hyponatraemia [Recovered/Resolved]

NARRATIVE: CASE EVENT DATE: 201405
